FAERS Safety Report 9305100 (Version 3)
Quarter: 2013Q4

REPORT INFORMATION
  Report Type: Report from Study
  Country: DE (occurrence: DE)
  Receive Date: 20130523
  Receipt Date: 20131118
  Transmission Date: 20140711
  Serious: Yes (Other)
  Sender: FDA-Public Use
  Company Number: PHHY2009DE67691

PATIENT
  Age: 42 Year
  Sex: Male
  Weight: 81 kg

DRUGS (1)
  1. EXTAVIA [Suspect]
     Indication: MULTIPLE SCLEROSIS
     Dosage: 250 UG, QOD
     Route: 058
     Dates: start: 20090405

REACTIONS (15)
  - Tachycardia [Not Recovered/Not Resolved]
  - Dyspnoea [Not Recovered/Not Resolved]
  - Back pain [Recovered/Resolved]
  - Hot flush [Recovered/Resolved]
  - Muscle spasms [Not Recovered/Not Resolved]
  - Injection site bruising [Recovered/Resolved]
  - Hypersensitivity [Recovered/Resolved]
  - Pruritus [Recovered/Resolved]
  - Erythema [Recovered/Resolved]
  - Chills [Recovered/Resolved]
  - Hyperhidrosis [Not Recovered/Not Resolved]
  - Injection site haematoma [Recovered/Resolved]
  - Injection site pain [Not Recovered/Not Resolved]
  - Pain in extremity [Not Recovered/Not Resolved]
  - Injection site erythema [Not Recovered/Not Resolved]
